FAERS Safety Report 6196320-3 (Version None)
Quarter: 2009Q2

REPORT INFORMATION
  Report Type: 
  Country: None (occurrence: None)
  Receive Date: 20090520
  Receipt Date: 20080410
  Transmission Date: 20091009
  Serious: Yes (Hospitalization, Other)
  Sender: FDA-Public Use
  Company Number: US-ASTRAZENECA-2008UW01161

PATIENT
  Age: 10198 Day
  Sex: Female
  Weight: 78 kg

DRUGS (26)
  1. SEROQUEL [Suspect]
     Indication: DEPRESSION
     Dosage: 100 - 600 MG
     Route: 048
     Dates: start: 19980501
  2. SEROQUEL [Suspect]
     Indication: SCHIZOPHRENIA
     Dosage: 100 - 600 MG
     Route: 048
     Dates: start: 19980501
  3. SEROQUEL [Suspect]
     Indication: BIPOLAR DISORDER
     Dosage: 100 - 600 MG
     Route: 048
     Dates: start: 19980501
  4. VENTOLIN [Concomitant]
     Dosage: 2 PUFFS AS REQUIRED
     Route: 055
  5. FLOVENT [Concomitant]
     Dosage: 2 PUFFS TWICE DAILY
     Route: 055
  6. CELEXA [Concomitant]
     Route: 048
  7. VISTARIL [Concomitant]
     Route: 048
  8. HALDOL [Concomitant]
     Dosage: 1MG- 10 MG DAILY
     Route: 048
  9. CATAPRES [Concomitant]
     Indication: HYPERTENSION
     Route: 048
  10. ZYPREXA [Concomitant]
     Route: 048
  11. TRAZODONE HCL [Concomitant]
     Dosage: 50MG - 100 MG DAILY
     Route: 048
  12. COGENTIN [Concomitant]
     Dosage: 2MG - 10 MG DAILY
     Route: 048
  13. THIAMINE HCL [Concomitant]
     Route: 048
  14. VICON FORTE [Concomitant]
     Route: 048
  15. TYLENOL [Concomitant]
     Dosage: 325MG - 650 MG DAILY
     Route: 048
  16. CHLORDIAZEPOXIDE [Concomitant]
     Route: 048
  17. ALUMINUM HYDROXIDE GEL [Concomitant]
     Route: 048
  18. HALCION [Concomitant]
     Route: 048
  19. MOTRIN [Concomitant]
     Route: 048
  20. SYMMETREL [Concomitant]
     Route: 048
  21. ELAVIL [Concomitant]
     Dosage: 50MG - 100 MG DAILY
     Route: 048
  22. DEPAKOTE [Concomitant]
     Route: 065
  23. SLOW MAG [Concomitant]
     Route: 048
  24. IMODIUM [Concomitant]
     Route: 048
  25. BENADRYL [Concomitant]
     Route: 048
  26. PAROXETINE HCL [Concomitant]
     Route: 048

REACTIONS (29)
  - ABDOMINAL PAIN [None]
  - ABDOMINAL PAIN LOWER [None]
  - ACCIDENTAL EXPOSURE [None]
  - ACUTE SINUSITIS [None]
  - ALCOHOL ABUSE [None]
  - ARTHROPOD BITE [None]
  - BACK PAIN [None]
  - BRONCHITIS [None]
  - CERVICITIS [None]
  - CHEST PAIN [None]
  - COUGH [None]
  - CRUSH INJURY [None]
  - DIABETES MELLITUS [None]
  - DIARRHOEA [None]
  - DIZZINESS [None]
  - DYSURIA [None]
  - HEADACHE [None]
  - LACERATION [None]
  - MIGRAINE [None]
  - MUSCLE SPASMS [None]
  - NECK PAIN [None]
  - PHARYNGITIS [None]
  - POLYSUBSTANCE DEPENDENCE [None]
  - SCHIZOAFFECTIVE DISORDER [None]
  - SUICIDAL IDEATION [None]
  - TOOTHACHE [None]
  - VAGINAL HAEMORRHAGE [None]
  - VERTIGO [None]
  - VOMITING [None]
